FAERS Safety Report 10701687 (Version 2)
Quarter: 2015Q1

REPORT INFORMATION
  Report Type: Spontaneous
  Country: US (occurrence: US)
  Receive Date: 20150109
  Receipt Date: 20150123
  Transmission Date: 20150721
  Serious: Yes (Hospitalization, Other)
  Sender: FDA-Public Use
  Company Number: US-009507513-1501USA002643

PATIENT
  Sex: Male

DRUGS (1)
  1. KEYTRUDA [Suspect]
     Active Substance: PEMBROLIZUMAB
     Indication: MALIGNANT MELANOMA
     Dosage: DOSE/FREQUENCY: ^WEIGHT BASED^. ROUTE: INFUSION.
     Route: 042
     Dates: start: 201410

REACTIONS (2)
  - Post procedural complication [Unknown]
  - Malignant neoplasm progression [Unknown]
